FAERS Safety Report 17326881 (Version 3)
Quarter: 2020Q1

REPORT INFORMATION
  Report Type: Spontaneous
  Country: US (occurrence: US)
  Receive Date: 20200127
  Receipt Date: 20200303
  Transmission Date: 20200409
  Serious: No
  Sender: FDA-Public Use
  Company Number: US-ASTRAZENECA-2020SE03059

PATIENT
  Age: 3529 Week
  Sex: Female
  Weight: 87.1 kg

DRUGS (12)
  1. METFORMIN  ER [Concomitant]
     Active Substance: METFORMIN HYDROCHLORIDE
  2. LIPITOR [Concomitant]
     Active Substance: ATORVASTATIN CALCIUM
  3. GABAPENTIN. [Concomitant]
     Active Substance: GABAPENTIN
     Indication: NEUROPATHY PERIPHERAL
  4. ASPIRIN. [Concomitant]
     Active Substance: ASPIRIN
  5. ATENOLOL. [Concomitant]
     Active Substance: ATENOLOL
  6. MELOXICAM. [Concomitant]
     Active Substance: MELOXICAM
  7. VIT D [Concomitant]
     Active Substance: VITAMIN D NOS
     Dosage: 1000 UNITS, DAILY
  8. PANTOPRAZOLE [Concomitant]
     Active Substance: PANTOPRAZOLE
     Indication: GASTROOESOPHAGEAL REFLUX DISEASE
  9. BYDUREON [Suspect]
     Active Substance: EXENATIDE
     Indication: TYPE 2 DIABETES MELLITUS
     Route: 058
  10. XANAX [Concomitant]
     Active Substance: ALPRAZOLAM
     Dosage: 0.25 MG, TWICE A DAY AS NEEDED
  11. ATORVASTATIN [Concomitant]
     Active Substance: ATORVASTATIN
  12. LASIX [Concomitant]
     Active Substance: FUROSEMIDE
     Dosage: ONCE A DAY AS NEEDED

REACTIONS (6)
  - Stress [Unknown]
  - Product dose omission [Recovered/Resolved]
  - Nervousness [Unknown]
  - Road traffic accident [Unknown]
  - Injection site haemorrhage [Recovered/Resolved]
  - Anxiety [Unknown]

NARRATIVE: CASE EVENT DATE: 20190715
